FAERS Safety Report 4394892-2 (Version None)
Quarter: 2004Q3

REPORT INFORMATION
  Report Type: 
  Country: None (occurrence: None)
  Receive Date: 20040706
  Receipt Date: 20040618
  Transmission Date: 20050211
  Serious: Yes (Hospitalization, Other)
  Sender: FDA-Public Use
  Company Number: 192445

PATIENT
  Age: 41 Year
  Sex: Female

DRUGS (3)
  1. AVONEX [Suspect]
     Indication: MULTIPLE SCLEROSIS
     Dosage: 30 MCG QW IM
     Route: 030
     Dates: start: 20030101, end: 20040213
  2. DOLIPRANE [Concomitant]
  3. IBUPROFENE [Concomitant]

REACTIONS (2)
  - CERVIX CARCINOMA STAGE 0 [None]
  - CONDYLOMA ACUMINATUM [None]
